FAERS Safety Report 6743546-3 (Version None)
Quarter: 2010Q2

REPORT INFORMATION
  Report Type: 
  Country: None (occurrence: None)
  Receive Date: 20100527
  Receipt Date: 20100521
  Transmission Date: 20101027
  Serious: Yes (Life-Threatening, Hospitalization)
  Sender: FDA-Public Use
  Company Number: JP-ROCHE-687206

PATIENT
  Sex: Female

DRUGS (22)
  1. TOCILIZUMAB [Suspect]
     Indication: RHEUMATOID ARTHRITIS
     Route: 041
     Dates: start: 20090603, end: 20090603
  2. TOCILIZUMAB [Suspect]
     Route: 041
     Dates: start: 20090701, end: 20090701
  3. TOCILIZUMAB [Suspect]
     Route: 041
     Dates: start: 20090729, end: 20090729
  4. METOLATE [Suspect]
     Indication: RHEUMATOID ARTHRITIS
     Route: 048
     Dates: end: 20090815
  5. PREDNISOLONE [Suspect]
     Indication: RHEUMATOID ARTHRITIS
     Route: 048
     Dates: end: 20090331
  6. PREDONINE [Suspect]
     Indication: RHEUMATOID ARTHRITIS
     Dosage: DRUG REPORTED AS PREDONINE
     Route: 048
     Dates: start: 20090331, end: 20090815
  7. PREDONINE [Suspect]
     Route: 048
     Dates: start: 20090822, end: 20090828
  8. PREDONINE [Suspect]
     Route: 048
     Dates: start: 20090829, end: 20090830
  9. PREDONINE [Suspect]
     Route: 048
     Dates: start: 20090831, end: 20090903
  10. PREDONINE [Suspect]
     Route: 048
     Dates: start: 20090904
  11. SOLU-MEDROL [Suspect]
     Route: 041
     Dates: start: 20090815, end: 20090818
  12. SOLU-MEDROL [Suspect]
     Route: 041
     Dates: start: 20090819, end: 20090821
  13. COTRIM [Suspect]
     Route: 048
     Dates: start: 20090816, end: 20090819
  14. COTRIM [Suspect]
     Route: 048
     Dates: start: 20090820, end: 20090903
  15. COTRIM [Suspect]
     Route: 048
     Dates: start: 20090904, end: 20090917
  16. COTRIM [Suspect]
     Route: 048
     Dates: start: 20090918
  17. ARAVA [Concomitant]
     Route: 048
     Dates: start: 20090331, end: 20090729
  18. LOXONIN [Concomitant]
     Dosage: DOSE FORM: PERORAL AGENT
     Route: 048
  19. VOLTAREN [Concomitant]
     Dosage: DOSE FORM: SUPPOSITORIAE RECTALE
     Route: 054
     Dates: end: 20091124
  20. FOLIAMIN [Concomitant]
     Dosage: DOSE FORM: PERORAL AGENT
     Route: 048
     Dates: end: 20090815
  21. EVISTA [Concomitant]
     Route: 048
  22. FAMOTIDINE [Concomitant]
     Route: 048

REACTIONS (2)
  - ASPARTATE AMINOTRANSFERASE INCREASED [None]
  - PNEUMOCYSTIS JIROVECI PNEUMONIA [None]
